FAERS Safety Report 4701822-X (Version None)
Quarter: 2005Q2

REPORT INFORMATION
  Report Type: 
  Country: None (occurrence: None)
  Receive Date: 20050624
  Receipt Date: 20050307
  Transmission Date: 20051028
  Serious: No
  Sender: FDA-Public Use
  Company Number: 2005BI005388

PATIENT
  Age: 41 Year
  Sex: Male
  Weight: 92.9874 kg

DRUGS (1)
  1. NATALIZUMAB [Suspect]
     Indication: MULTIPLE SCLEROSIS
     Dosage: IV
     Route: 042
     Dates: start: 20050222, end: 20050222

REACTIONS (3)
  - EPISTAXIS [None]
  - HEMIPARESIS [None]
  - PRURITUS [None]
